FAERS Safety Report 8504821-5 (Version None)
Quarter: 2012Q3

REPORT INFORMATION
  Report Type: 
  Country: None (occurrence: None)
  Receive Date: 20120712
  Receipt Date: 20120706
  Transmission Date: 20120928
  Serious: No
  Sender: FDA-Public Use
  Company Number: US-BIOGENIDEC-2012BI024501

PATIENT
  Age: 41 Year
  Sex: Male

DRUGS (3)
  1. AVONEX [Suspect]
     Route: 030
     Dates: start: 20120101
  2. AVONEX [Suspect]
     Indication: MULTIPLE SCLEROSIS
     Route: 030
     Dates: start: 20050524, end: 20120101
  3. AVONEX [Suspect]
     Route: 030
     Dates: start: 20120101, end: 20120101

REACTIONS (3)
  - VISUAL IMPAIRMENT [None]
  - ABASIA [None]
  - MUSCULAR WEAKNESS [None]
